FAERS Safety Report 19018786 (Version 1)
Quarter: 2021Q1

REPORT INFORMATION
  Report Type: Spontaneous
  Country: US (occurrence: US)
  Receive Date: 20210317
  Receipt Date: 20210317
  Transmission Date: 20210420
  Serious: Yes (Other)
  Sender: FDA-Public Use
  Company Number: US-MYLANLABS-2021M1015235

PATIENT
  Sex: Female
  Weight: 174 kg

DRUGS (2)
  1. EPIPEN [Suspect]
     Active Substance: EPINEPHRINE
     Indication: SWELLING
  2. EPIPEN [Suspect]
     Active Substance: EPINEPHRINE
     Indication: PRURITUS
     Dosage: UNK
     Route: 065

REACTIONS (3)
  - Oropharyngeal pain [Unknown]
  - Laryngeal oedema [Unknown]
  - Therapeutic product effect incomplete [Unknown]
